FAERS Safety Report 19257749 (Version 1)
Quarter: 2021Q2

REPORT INFORMATION
  Report Type: Spontaneous
  Country: US (occurrence: US)
  Receive Date: 20210513
  Receipt Date: 20210513
  Transmission Date: 20210717
  Serious: Yes (Hospitalization)
  Sender: FDA-Public Use
  Company Number: None

PATIENT
  Age: 58 Year
  Sex: Female

DRUGS (26)
  1. AMITRIPTYLIN [Concomitant]
     Active Substance: AMITRIPTYLINE
  2. DIPHEN/ATROP [Concomitant]
     Active Substance: ATROPINE SULFATE\DIPHENOXYLATE
  3. SOLIFENACIN [Concomitant]
     Active Substance: SOLIFENACIN
  4. LOTEMAX [Concomitant]
     Active Substance: LOTEPREDNOL ETABONATE
  5. NIFEDIPINE. [Concomitant]
     Active Substance: NIFEDIPINE
  6. CEFUROXIME. [Concomitant]
     Active Substance: CEFUROXIME
  7. LEFLUNOMIDE. [Concomitant]
     Active Substance: LEFLUNOMIDE
  8. CEPHALEXIN. [Concomitant]
     Active Substance: CEPHALEXIN
  9. LEVOTHYROXIN [Concomitant]
     Active Substance: LEVOTHYROXINE
  10. PAZEO [Concomitant]
     Active Substance: OLOPATADINE HYDROCHLORIDE
  11. AMOXICILLIN. [Concomitant]
     Active Substance: AMOXICILLIN
  12. ESCITALOPRAM [Concomitant]
     Active Substance: ESCITALOPRAM OXALATE
  13. GABAPENTIN. [Concomitant]
     Active Substance: GABAPENTIN
  14. POT CL MICRO ER [Concomitant]
  15. PRAVASTATIN. [Concomitant]
     Active Substance: PRAVASTATIN
  16. RESTATIS EMU [Concomitant]
  17. TRIAM/HCTZ [Concomitant]
     Active Substance: HYDROCHLOROTHIAZIDE\TRIAMTERENE
  18. ESZOPICLONE. [Concomitant]
     Active Substance: ESZOPICLONE
  19. PRAMIPEXOLE. [Concomitant]
     Active Substance: PRAMIPEXOLE
  20. HUMIRA [Suspect]
     Active Substance: ADALIMUMAB
     Indication: RHEUMATOID ARTHRITIS
     Dosage: 1 SYR QOW SQ
     Route: 058
     Dates: start: 20180205
  21. ATORVASTATIN [Concomitant]
     Active Substance: ATORVASTATIN
  22. CLOPIDOGREL [Concomitant]
     Active Substance: CLOPIDOGREL BISULFATE
  23. METOPROL SUC ER [Concomitant]
     Active Substance: METOPROLOL SUCCINATE
  24. ONDANSETRON [Concomitant]
     Active Substance: ONDANSETRON
  25. PANTOPRAZOLE [Concomitant]
     Active Substance: PANTOPRAZOLE
  26. POT CHLORIDE ER [Concomitant]

REACTIONS (1)
  - Thrombosis [None]

NARRATIVE: CASE EVENT DATE: 20210506
